FAERS Safety Report 11025192 (Version 1)
Quarter: 2015Q2

REPORT INFORMATION
  Report Type: Spontaneous
  Country: US (occurrence: None)
  Receive Date: 20150413
  Receipt Date: 20150413
  Transmission Date: 20150821
  Serious: Yes (Other)
  Sender: FDA-Public Use
  Company Number: None

PATIENT
  Age: 52 Year
  Sex: Female

DRUGS (1)
  1. TECFIDERA [Suspect]
     Active Substance: DIMETHYL FUMARATE
     Indication: MULTIPLE SCLEROSIS
     Route: 048
     Dates: start: 20150226, end: 20150408

REACTIONS (7)
  - Abdominal pain [None]
  - Erythema [None]
  - Feeling abnormal [None]
  - Feeling hot [None]
  - Head discomfort [None]
  - Diarrhoea [None]
  - Mental impairment [None]

NARRATIVE: CASE EVENT DATE: 20150408
